FAERS Safety Report 6709269-1 (Version None)
Quarter: 2010Q2

REPORT INFORMATION
  Report Type: 
  Country: None (occurrence: None)
  Receive Date: 20100423
  Receipt Date: 20090807
  Transmission Date: 20101027
  Serious: Yes (Other)
  Sender: FDA-Public Use
  Company Number: WAES 0908USA01348

PATIENT
  Sex: Male

DRUGS (1)
  1. SINGULAIR [Suspect]
     Dosage: PO

REACTIONS (1)
  - CONVULSION [None]
